FAERS Safety Report 5284971-X (Version None)
Quarter: 2007Q2

REPORT INFORMATION
  Report Type: 
  Country: None (occurrence: None)
  Receive Date: 20070403
  Receipt Date: 20070307
  Transmission Date: 20071010
  Serious: Yes (Other)
  Sender: FDA-Public Use
  Company Number: JP-PFIZER INC-2007021035

PATIENT
  Age: 86 Year
  Sex: Male

DRUGS (1)
  1. MIGLITOL [Suspect]
     Indication: DIABETES MELLITUS
     Route: 048
     Dates: start: 20070223, end: 20070228

REACTIONS (1)
  - INTESTINAL OBSTRUCTION [None]
